FAERS Safety Report 16886307 (Version 1)
Quarter: 2019Q4

REPORT INFORMATION
  Report Type: Spontaneous
  Country: US (occurrence: US)
  Receive Date: 20191004
  Receipt Date: 20191004
  Transmission Date: 20200122
  Serious: Yes (Other)
  Sender: FDA-Public Use
  Company Number: US-BAYER-2019-179785

PATIENT
  Sex: Female

DRUGS (1)
  1. BETASERON [Suspect]
     Active Substance: INTERFERON BETA-1B
     Dosage: UNK, 0.3
     Route: 058
     Dates: start: 201901

REACTIONS (2)
  - Multiple sclerosis [None]
  - Pain in extremity [None]
